FAERS Safety Report 5381468-3 (Version None)
Quarter: 2007Q3

REPORT INFORMATION
  Report Type: 
  Country: None (occurrence: None)
  Receive Date: 20070709
  Receipt Date: 20070703
  Transmission Date: 20080115
  Serious: Yes (Hospitalization)
  Sender: FDA-Public Use
  Company Number: DK-BRISTOL-MYERS SQUIBB COMPANY-13818554

PATIENT
  Age: 31 Year
  Sex: Male

DRUGS (4)
  1. TAXOL [Suspect]
     Indication: GERM CELL CANCER
     Route: 042
     Dates: start: 20070608, end: 20070612
  2. ETOPOSIDE [Suspect]
     Indication: GERM CELL CANCER
     Route: 042
     Dates: start: 20070608, end: 20070612
  3. CISPLATIN [Suspect]
     Indication: GERM CELL CANCER
     Route: 042
     Dates: start: 20070608, end: 20070612
  4. BLEOMYCIN SULFATE [Suspect]
     Indication: GERM CELL CANCER
     Route: 042
     Dates: start: 20070608, end: 20070612

REACTIONS (1)
  - FEBRILE NEUTROPENIA [None]
